FAERS Safety Report 10431228 (Version 1)
Quarter: 2014Q3

REPORT INFORMATION
  Report Type: Spontaneous
  Country: US (occurrence: None)
  Receive Date: 20140815
  Receipt Date: 20140815
  Transmission Date: 20150326
  Serious: No
  Sender: FDA-Public Use
  Company Number: A-NJ2014-100067

PATIENT
  Age: 33 Year
  Sex: Female

DRUGS (4)
  1. ADCIRCA (TADALFIL) [Concomitant]
  2. FUROSEMIDE (FUROSEMIDE SODIUM) [Concomitant]
  3. OPSUMIT [Suspect]
     Active Substance: MACITENTAN
     Indication: PULMONARY ARTERIAL HYPERTENSION
     Route: 048
     Dates: start: 20140305, end: 20140522
  4. KLOR-CON [Concomitant]
     Active Substance: POTASSIUM CHLORIDE

REACTIONS (1)
  - Pregnancy [None]

NARRATIVE: CASE EVENT DATE: 20140522
